FAERS Safety Report 25352868 (Version 1)
Quarter: 2025Q2

REPORT INFORMATION
  Report Type: Spontaneous
  Country: US (occurrence: US)
  Receive Date: 20250523
  Receipt Date: 20250523
  Transmission Date: 20250716
  Serious: No
  Sender: PFIZER
  Company Number: US-PFIZER INC-202500106057

PATIENT
  Age: 51 Year
  Sex: Female
  Weight: 117.91 kg

DRUGS (14)
  1. PAXLOVID [Suspect]
     Active Substance: NIRMATRELVIR\RITONAVIR
     Indication: COVID-19 treatment
  2. ALLEGRA [Concomitant]
     Active Substance: FEXOFENADINE HYDROCHLORIDE
     Indication: Seasonal allergy
  3. CANDESARTAN [Concomitant]
     Active Substance: CANDESARTAN
     Indication: Hypertension
  4. BOTOX [Concomitant]
     Active Substance: ONABOTULINUMTOXINA
     Indication: Migraine
  5. NALTREXONE [Concomitant]
     Active Substance: NALTREXONE
     Indication: Migraine
  6. LEVOXYL [Concomitant]
     Active Substance: LEVOTHYROXINE SODIUM
     Indication: Hypothyroidism
  7. MEDROXYPROGESTERONE [Concomitant]
     Active Substance: MEDROXYPROGESTERONE
     Indication: Intermenstrual bleeding
  8. GLUCOSAMINE SULFATE [Concomitant]
     Active Substance: GLUCOSAMINE SULFATE
     Indication: Arthritis
     Dosage: 50 MG, 3X/DAY
  9. ZINC [Concomitant]
     Active Substance: ZINC
  10. ACETYLCYSTEINE [Concomitant]
     Active Substance: ACETYLCYSTEINE
  11. TAURINE [Concomitant]
     Active Substance: TAURINE
  12. GINGER [Concomitant]
     Active Substance: GINGER
     Indication: Nausea
  13. LAMICTAL [Concomitant]
     Active Substance: LAMOTRIGINE
     Indication: Depression
     Dosage: 100 MILLIGRAM, HALF A TABLET TWICE A DAY
  14. ADEMETIONINE [Concomitant]
     Active Substance: ADEMETIONINE
     Indication: Depression

REACTIONS (2)
  - Therapeutic response unexpected [Unknown]
  - Taste disorder [Unknown]
